FAERS Safety Report 14154743 (Version 1)
Quarter: 2017Q4

REPORT INFORMATION
  Report Type: Spontaneous
  Country: US (occurrence: US)
  Receive Date: 20171102
  Receipt Date: 20171102
  Transmission Date: 20180321
  Serious: Yes (Hospitalization)
  Sender: FDA-Public Use
  Company Number: None

PATIENT
  Age: 7 Year
  Sex: Male
  Weight: 28.85 kg

DRUGS (7)
  1. ONDANSETRON [Concomitant]
     Active Substance: ONDANSETRON
  2. LIDOCAINE. [Concomitant]
     Active Substance: LIDOCAINE
  3. ONCASPAR [Suspect]
     Active Substance: PEGASPARGASE
     Indication: ACUTE LYMPHOCYTIC LEUKAEMIA
     Dosage: STRENGTH 3750 UNITS/PER 5ML IU?          OTHER FREQUENCY:ONCE (SCHEDULED);?
     Route: 042
     Dates: start: 20171030, end: 20171030
  4. BACTRIM [Concomitant]
     Active Substance: SULFAMETHOXAZOLE\TRIMETHOPRIM
  5. MERCAPTOPURINE. [Concomitant]
     Active Substance: MERCAPTOPURINE
  6. VINCRISTINE + SODIUM CHLORIDE [Concomitant]
  7. LIDOCAINE. [Concomitant]
     Active Substance: LIDOCAINE

REACTIONS (6)
  - No reaction on previous exposure to drug [None]
  - Infusion related reaction [None]
  - Cough [None]
  - Vomiting [None]
  - Oropharyngeal discomfort [None]
  - Oxygen saturation decreased [None]

NARRATIVE: CASE EVENT DATE: 20171030
